FAERS Safety Report 7160516-4 (Version None)
Quarter: 2010Q4

REPORT INFORMATION
  Report Type: 
  Country: None (occurrence: None)
  Receive Date: 20101214
  Receipt Date: 20101207
  Transmission Date: 20110411
  Serious: Yes (Other)
  Sender: FDA-Public Use
  Company Number: US-PFIZER INC-2010166615

PATIENT
  Sex: Female
  Weight: 60.317 kg

DRUGS (1)
  1. EFFEXOR XR [Suspect]
     Indication: ANXIETY
     Dosage: 150 MG, 1X/DAY
     Route: 048
     Dates: start: 20000101

REACTIONS (7)
  - ACTIVITIES OF DAILY LIVING IMPAIRED [None]
  - BLOOD CHOLESTEROL INCREASED [None]
  - DRUG INEFFECTIVE [None]
  - FATIGUE [None]
  - NAUSEA [None]
  - RED BLOOD CELL COUNT INCREASED [None]
  - WHITE BLOOD CELL COUNT DECREASED [None]
